FAERS Safety Report 9096609 (Version 1)
Quarter: 2013Q1

REPORT INFORMATION
  Report Type: Spontaneous
  Country: IN (occurrence: IN)
  Receive Date: 20130211
  Receipt Date: 20130211
  Transmission Date: 20140127
  Serious: Yes (Other)
  Sender: FDA-Public Use
  Company Number: PHHY2013IN011141

PATIENT
  Sex: 0

DRUGS (15)
  1. VALPROIC ACID [Suspect]
     Dosage: MATERNAL DOSE 400 MG, TID
     Route: 064
  2. VALPROIC ACID [Suspect]
     Dosage: MATERNAL DOSE 1500 MG, UNK
     Route: 064
  3. VALPROIC ACID [Suspect]
     Dosage: MATERNAL DOSE 400 MG, TID
     Route: 064
  4. PHENYTOIN [Suspect]
     Dosage: MATERNAL DOSE 200 MG, BID
     Route: 064
  5. PHENYTOIN [Suspect]
     Dosage: UNK
     Route: 064
  6. PHENYTOIN [Suspect]
     Dosage: MATERNAL DOSE 15000 MG,OVER 30 MINUTES
     Route: 064
  7. PHENYTOIN [Suspect]
     Dosage: MATERNAL DOSE 100 MG, TID
     Route: 064
  8. DIAZEPAM [Suspect]
     Dosage: MATERNAL DOSE 10 MG, UNK
     Route: 064
  9. MIDAZOLAM [Suspect]
     Dosage: MATERNAL DOSE 2 MG, UNK
     Route: 064
  10. THIOPENTAL SODIUM [Suspect]
     Dosage: MATERNAL DOSE 300 MG, UNK
     Route: 064
  11. SUCCINYLCHOLINE CHLORIDE [Suspect]
     Dosage: MATERNAL DOSE 100 MG, UNK
     Route: 064
  12. ATRACURIUM BESYLATE [Suspect]
     Dosage: MATERNAL DOSE 30 MG, UNK
     Route: 064
  13. ATRACURIUM BESYLATE [Suspect]
     Dosage: MATERNAL DOSE 7.5 MG, UNK
     Route: 064
  14. ISOFLURANE [Suspect]
     Dosage: MATERNAL DOSE 0.5 %, UNK
     Route: 064
  15. NITROUS OXIDE [Suspect]

REACTIONS (8)
  - Respiration abnormal [Recovered/Resolved]
  - Apgar score low [Unknown]
  - Cyanosis neonatal [Unknown]
  - Hypokinesia [Unknown]
  - Premature baby [Unknown]
  - Foetal exposure during pregnancy [Unknown]
  - Caesarean section [None]
  - Maternal drugs affecting foetus [None]
